FAERS Safety Report 9497788 (Version 1)
Quarter: 2013Q3

REPORT INFORMATION
  Report Type: Spontaneous
  Country: US (occurrence: US)
  Receive Date: 20130904
  Receipt Date: 20130904
  Transmission Date: 20140515
  Serious: No
  Sender: FDA-Public Use
  Company Number: US-AMGEN-USASP2013061049

PATIENT
  Age: 51 Year
  Sex: Male
  Weight: 203 kg

DRUGS (17)
  1. ENBREL [Suspect]
     Indication: PRODUCT USED FOR UNKNOWN INDICATION
     Dosage: UNK
     Route: 065
     Dates: start: 2004, end: 201210
  2. HUMIRA [Suspect]
     Indication: RHEUMATOID ARTHRITIS
     Dosage: 40 MG, UNK (1 IN 2 WEEKS)
     Route: 065
     Dates: start: 201210
  3. METHOTREXATE [Concomitant]
     Indication: RHEUMATOID ARTHRITIS
     Dosage: UNK
  4. PREDNISONE [Concomitant]
     Indication: RHEUMATOID ARTHRITIS
     Dosage: UNK
  5. MELOXICAM [Concomitant]
     Indication: PAIN
     Dosage: UNK
  6. HYDROCODONE [Concomitant]
     Indication: PAIN
     Dosage: UNK
  7. FOLIC ACID [Concomitant]
     Indication: VITAMIN SUPPLEMENTATION
     Dosage: UNK
  8. ZANAFLEX [Concomitant]
     Indication: OSTEOARTHRITIS
     Dosage: UNK
  9. ATENOLOL [Concomitant]
     Indication: BLOOD PRESSURE
     Dosage: UNK
  10. HYDROCHLOROTHIAZIDE [Concomitant]
     Indication: BLOOD PRESSURE
     Dosage: UNK
  11. LISINOPRIL [Concomitant]
     Indication: BLOOD PRESSURE
     Dosage: UNK
  12. ASPIRIN [Concomitant]
     Indication: CARDIAC DISORDER
     Dosage: 81 MG, QD (1 IN 1 D)
  13. ALPRAZOLAM [Concomitant]
     Indication: ANXIETY
     Dosage: UNK
  14. TEMAZEPAM [Concomitant]
     Indication: SLEEP DISORDER
     Dosage: UNK UNK, AS NECESSARY
  15. WELLBUTRIN [Concomitant]
     Indication: DEPRESSION
     Dosage: UNK
  16. FLONASE                            /00972202/ [Concomitant]
     Indication: HYPERSENSITIVITY
     Dosage: UNK
  17. ZYRTEC [Concomitant]
     Dosage: UNK

REACTIONS (5)
  - Gait disturbance [Unknown]
  - Laceration [Recovered/Resolved]
  - Local swelling [Unknown]
  - Pain in extremity [Unknown]
  - Drug dose omission [Unknown]
